FAERS Safety Report 23391859 (Version 7)
Quarter: 2024Q2

REPORT INFORMATION
  Report Type: Spontaneous
  Country: US (occurrence: US)
  Receive Date: 20240111
  Receipt Date: 20240503
  Transmission Date: 20240716
  Serious: Yes (Other)
  Sender: FDA-Public Use
  Company Number: US-ELI_LILLY_AND_COMPANY-US202401001225

PATIENT
  Age: 65 Year
  Sex: Male

DRUGS (24)
  1. HUMALOG [Suspect]
     Active Substance: INSULIN LISPRO
     Indication: Type 1 diabetes mellitus
     Dosage: 15 U, UNKNOWN
     Route: 058
  2. HUMALOG [Suspect]
     Active Substance: INSULIN LISPRO
     Indication: Type 1 diabetes mellitus
     Dosage: 15 U, UNKNOWN
     Route: 058
  3. HUMALOG [Suspect]
     Active Substance: INSULIN LISPRO
     Indication: Type 1 diabetes mellitus
     Dosage: 15 U, UNKNOWN
     Route: 058
  4. HUMALOG [Suspect]
     Active Substance: INSULIN LISPRO
     Indication: Type 1 diabetes mellitus
     Dosage: 15 U, UNKNOWN
     Route: 058
  5. HUMALOG [Suspect]
     Active Substance: INSULIN LISPRO
     Indication: Type 1 diabetes mellitus
     Dosage: 15 U, UNKNOWN
     Route: 058
  6. HUMALOG [Suspect]
     Active Substance: INSULIN LISPRO
     Indication: Type 1 diabetes mellitus
     Dosage: 15 U, UNKNOWN
     Route: 058
  7. HUMALOG [Suspect]
     Active Substance: INSULIN LISPRO
     Dosage: 15 U, UNKNOWN
     Route: 058
  8. HUMALOG [Suspect]
     Active Substance: INSULIN LISPRO
     Dosage: 15 U, UNKNOWN
     Route: 058
  9. HUMALOG [Suspect]
     Active Substance: INSULIN LISPRO
     Dosage: 15 U, UNKNOWN
     Route: 058
  10. HUMALOG [Suspect]
     Active Substance: INSULIN LISPRO
     Dosage: 15 U, UNKNOWN
     Route: 058
  11. HUMALOG [Suspect]
     Active Substance: INSULIN LISPRO
     Dosage: 15 U, UNKNOWN
     Route: 058
  12. HUMALOG [Suspect]
     Active Substance: INSULIN LISPRO
     Dosage: 15 U, UNKNOWN
     Route: 058
  13. HUMALOG [Suspect]
     Active Substance: INSULIN LISPRO
     Dosage: 15 U, UNKNOWN
     Route: 058
  14. HUMALOG [Suspect]
     Active Substance: INSULIN LISPRO
     Dosage: 15 U, UNKNOWN
     Route: 058
  15. HUMALOG [Suspect]
     Active Substance: INSULIN LISPRO
     Dosage: 15 U, UNKNOWN
     Route: 058
  16. HUMALOG [Suspect]
     Active Substance: INSULIN LISPRO
     Dosage: 15 U, UNKNOWN
     Route: 058
  17. HUMALOG [Suspect]
     Active Substance: INSULIN LISPRO
     Dosage: 15 U, UNKNOWN
     Route: 058
  18. HUMALOG [Suspect]
     Active Substance: INSULIN LISPRO
     Dosage: UNK UNK, UNKNOWN
     Route: 065
  19. HUMALOG [Suspect]
     Active Substance: INSULIN LISPRO
     Dosage: UNK UNK, UNKNOWN
     Route: 065
  20. HUMALOG [Suspect]
     Active Substance: INSULIN LISPRO
     Dosage: UNK UNK, UNKNOWN
     Route: 065
  21. HUMALOG [Suspect]
     Active Substance: INSULIN LISPRO
     Dosage: UNK UNK, UNKNOWN
     Route: 065
  22. HUMALOG [Suspect]
     Active Substance: INSULIN LISPRO
     Indication: Product used for unknown indication
     Dosage: UNK, UNKNOWN
     Route: 065
  23. LANTUS [Concomitant]
     Active Substance: INSULIN GLARGINE
     Indication: Product used for unknown indication
     Dosage: UNK
  24. TOUJEO [Concomitant]
     Active Substance: INSULIN GLARGINE
     Indication: Product used for unknown indication
     Dosage: 38 U, EACH MORNING

REACTIONS (9)
  - Blood glucose decreased [Recovered/Resolved]
  - Blood glucose increased [Recovered/Resolved]
  - Fall [Unknown]
  - Incorrect dose administered [Unknown]
  - Glycosylated haemoglobin increased [Unknown]
  - Blood glucose increased [Recovering/Resolving]
  - Blood glucose increased [Unknown]
  - Blood glucose abnormal [Unknown]
  - Accidental underdose [Unknown]

NARRATIVE: CASE EVENT DATE: 20231001
